FAERS Safety Report 10274709 (Version 3)
Quarter: 2014Q4

REPORT INFORMATION
  Report Type: Report from Study
  Country: BR (occurrence: BR)
  Receive Date: 20140702
  Receipt Date: 20141021
  Transmission Date: 20150528
  Serious: Yes (Hospitalization)
  Sender: FDA-Public Use
  Company Number: BR-ABBVIE-14P-020-1254379-00

PATIENT
  Age: 24 Year
  Sex: Female
  Weight: 40 kg

DRUGS (7)
  1. NORIPURUM [Concomitant]
     Active Substance: IRON POLYMALTOSE
     Indication: ANAEMIA
     Route: 042
     Dates: start: 201407
  2. METHOTREXATE [Concomitant]
     Active Substance: METHOTREXATE
     Indication: CROHN^S DISEASE
     Dates: start: 201407
  3. HUMIRA [Suspect]
     Active Substance: ADALIMUMAB
     Indication: CROHN^S DISEASE
     Dosage: INDUCTION DOSE
     Route: 058
     Dates: start: 20090618, end: 20090618
  4. PREDNISONE. [Concomitant]
     Active Substance: PREDNISONE
     Indication: CROHN^S DISEASE
     Route: 048
     Dates: start: 2001
  5. HUMIRA [Suspect]
     Active Substance: ADALIMUMAB
     Route: 058
     Dates: end: 20131001
  6. HUMIRA [Suspect]
     Active Substance: ADALIMUMAB
     Dosage: INDUCTION DOSE
     Route: 058
     Dates: start: 20140624, end: 20140624
  7. HUMIRA [Suspect]
     Active Substance: ADALIMUMAB
     Route: 058

REACTIONS (10)
  - Intestinal mass [Unknown]
  - Influenza [Recovering/Resolving]
  - Weight decreased [Recovered/Resolved]
  - Crohn^s disease [Recovered/Resolved]
  - Dysmenorrhoea [Recovered/Resolved]
  - Large intestinal stenosis [Recovered/Resolved]
  - Eye pain [Recovering/Resolving]
  - Abdominal pain [Recovered/Resolved]
  - Vomiting [Recovered/Resolved]
  - Rhinitis [Unknown]

NARRATIVE: CASE EVENT DATE: 2014
